FAERS Safety Report 7890998-1 (Version None)
Quarter: 2011Q4

REPORT INFORMATION
  Report Type: 
  Country: None (occurrence: None)
  Receive Date: 20111103
  Receipt Date: 20110727
  Transmission Date: 20120403
  Serious: No
  Sender: FDA-Public Use
  Company Number: US-AMGEN-USASP2011038172

PATIENT
  Sex: Female

DRUGS (5)
  1. ETODOLAC [Concomitant]
  2. VITAMIN C                          /00008001/ [Concomitant]
  3. VITAMIN D [Concomitant]
  4. METHOTREXATE [Concomitant]
  5. ENBREL [Suspect]
     Indication: PSORIASIS
     Dosage: 50 MG, QWK
     Dates: start: 20110501

REACTIONS (2)
  - INJECTION SITE ERYTHEMA [None]
  - INJECTION SITE REACTION [None]
